FAERS Safety Report 12786677 (Version 1)
Quarter: 2016Q3

REPORT INFORMATION
  Report Type: Spontaneous
  Country: US (occurrence: US)
  Receive Date: 20160927
  Receipt Date: 20160927
  Transmission Date: 20161109
  Serious: Yes (Other)
  Sender: FDA-Public Use
  Company Number: US-ELI_LILLY_AND_COMPANY-US201609007334

PATIENT
  Age: 87 Year
  Sex: Female

DRUGS (4)
  1. CARVEDILOL. [Concomitant]
     Active Substance: CARVEDILOL
  2. HUMALOG [Suspect]
     Active Substance: INSULIN LISPRO
     Dosage: UNK, SLIDING SCALE
     Route: 065
  3. ATORVASTATIN [Concomitant]
     Active Substance: ATORVASTATIN
  4. HUMALOG [Suspect]
     Active Substance: INSULIN LISPRO
     Indication: TYPE 2 DIABETES MELLITUS
     Dosage: UNK, SLIDING SCALE
     Route: 065
     Dates: start: 201505

REACTIONS (5)
  - Blood glucose decreased [Unknown]
  - Dizziness [Unknown]
  - Blood glucose decreased [Recovered/Resolved]
  - Incorrect dose administered [Unknown]
  - Memory impairment [Unknown]

NARRATIVE: CASE EVENT DATE: 20160911
